FAERS Safety Report 5120738-0 (Version None)
Quarter: 2006Q4

REPORT INFORMATION
  Report Type: 
  Country: None (occurrence: None)
  Receive Date: 20061003
  Receipt Date: 20061003
  Transmission Date: 20070319
  Serious: Yes (Other)
  Sender: FDA-Public Use
  Company Number: None

PATIENT
  Sex: Female
  Weight: 88.4514 kg

DRUGS (2)
  1. BACTRIM DS [Suspect]
     Indication: CYSTITIS
     Dosage: 1 TAB (800/160) EVERY 12 HOURS ORAL
     Route: 048
     Dates: start: 20060817, end: 20060819
  2. BACTRIM DS [Suspect]
     Indication: URINARY TRACT INFECTION
     Dosage: 1 TAB (800/160) EVERY 12 HOURS ORAL
     Route: 048
     Dates: start: 20060817, end: 20060819

REACTIONS (5)
  - ABDOMINAL PAIN [None]
  - CONDITION AGGRAVATED [None]
  - CYSTITIS [None]
  - DRUG INEFFECTIVE [None]
  - PHARMACEUTICAL PRODUCT COMPLAINT [None]
